FAERS Safety Report 11549452 (Version 1)
Quarter: 2015Q3

REPORT INFORMATION
  Report Type: Spontaneous
  Country: US (occurrence: US)
  Receive Date: 20150924
  Receipt Date: 20150924
  Transmission Date: 20151125
  Serious: Yes (Hospitalization)
  Sender: FDA-Public Use
  Company Number: US-INCYTE CORPORATION-2015IN004694

PATIENT
  Sex: Male

DRUGS (23)
  1. JAKAFI [Suspect]
     Active Substance: RUXOLITINIB
     Dosage: 20 MG, BID
     Route: 048
  2. ASPIRIN. [Concomitant]
     Active Substance: ASPIRIN
  3. NITROGLYCERIN. [Concomitant]
     Active Substance: NITROGLYCERIN
  4. JANUVIA [Concomitant]
     Active Substance: SITAGLIPTIN PHOSPHATE
  5. MAGNESIUM [Concomitant]
     Active Substance: MAGNESIUM
  6. SYNTHROID [Concomitant]
     Active Substance: LEVOTHYROXINE SODIUM
  7. VANCOMYCIN [Concomitant]
     Active Substance: VANCOMYCIN
  8. BUDESONIDE. [Concomitant]
     Active Substance: BUDESONIDE
  9. ALPRAZOLAM. [Concomitant]
     Active Substance: ALPRAZOLAM
  10. ALBUTEROL                          /00139501/ [Concomitant]
     Active Substance: ALBUTEROL
  11. PANTOPRAZOLE [Concomitant]
     Active Substance: PANTOPRAZOLE SODIUM
  12. FLUOXETINE [Concomitant]
     Active Substance: FLUOXETINE\FLUOXETINE HYDROCHLORIDE
  13. MULTIVITAMIN                       /00097801/ [Concomitant]
     Active Substance: VITAMINS
  14. OMEGA 3                            /01334101/ [Concomitant]
     Active Substance: OMEGA-3 FATTY ACIDS
  15. IMDUR [Concomitant]
     Active Substance: ISOSORBIDE MONONITRATE
  16. FENOFIBRATE. [Concomitant]
     Active Substance: FENOFIBRATE
  17. METOPROLOL [Concomitant]
     Active Substance: METOPROLOL
  18. XOPENEX [Concomitant]
     Active Substance: LEVALBUTEROL HYDROCHLORIDE
  19. FISH OIL [Concomitant]
     Active Substance: FISH OIL
  20. HYDROXYUREA. [Concomitant]
     Active Substance: HYDROXYUREA
  21. AZITHROMYCIN [Concomitant]
     Active Substance: AZITHROMYCIN ANHYDROUS
  22. PREDNISONE. [Concomitant]
     Active Substance: PREDNISONE
  23. PROBIOTICS NOS [Concomitant]
     Active Substance: PROBIOTICS NOS

REACTIONS (1)
  - Pneumonia [Unknown]
